FAERS Safety Report 14231251 (Version 3)
Quarter: 2018Q4

REPORT INFORMATION
  Report Type: Spontaneous
  Country: US (occurrence: US)
  Receive Date: 20171128
  Receipt Date: 20181016
  Transmission Date: 20190204
  Serious: No
  Sender: FDA-Public Use
  Company Number: US-JNJFOC-20171027965

PATIENT
  Sex: Female

DRUGS (7)
  1. WOMENS ROGAINE [Suspect]
     Active Substance: MINOXIDIL
     Route: 061
  2. CALCIUM [Concomitant]
     Active Substance: CALCIUM
     Indication: NUTRITIONAL SUPPLEMENTATION
     Route: 065
  3. MULTI VITAMIN [Concomitant]
     Active Substance: VITAMINS
     Indication: ROUTINE HEALTH MAINTENANCE
     Route: 065
  4. WOMENS ROGAINE [Suspect]
     Active Substance: MINOXIDIL
     Indication: ALOPECIA
     Dosage: PATIENT THINK 2013 OR EARLY 2014
     Route: 061
     Dates: end: 20171022
  5. VITAMIN D3 [Concomitant]
     Active Substance: CHOLECALCIFEROL
     Indication: ROUTINE HEALTH MAINTENANCE
     Route: 065
  6. VITAMIN C [Concomitant]
     Active Substance: ASCORBIC ACID
     Indication: ROUTINE HEALTH MAINTENANCE
     Route: 065
  7. BIOTIN [Concomitant]
     Active Substance: BIOTIN
     Indication: HAIR DISORDER
     Route: 065

REACTIONS (9)
  - Acne [Recovered/Resolved]
  - Alopecia [Recovered/Resolved]
  - Skin haemorrhage [Recovered/Resolved]
  - Hair growth abnormal [Recovered/Resolved]
  - Drug ineffective [Unknown]
  - Application site pruritus [Recovered/Resolved]
  - Skin burning sensation [Recovered/Resolved]
  - Erythema [Recovered/Resolved]
  - Dermatitis [Recovered/Resolved]

NARRATIVE: CASE EVENT DATE: 2013
